FAERS Safety Report 6192500-1 (Version None)
Quarter: 2009Q2

REPORT INFORMATION
  Report Type: 
  Country: None (occurrence: None)
  Receive Date: 20090518
  Receipt Date: 20090505
  Transmission Date: 20091009
  Serious: Yes (Hospitalization)
  Sender: FDA-Public Use
  Company Number: FR-SOLVAY-00209002504

PATIENT
  Age: 28624 Day
  Sex: Female

DRUGS (12)
  1. ACTISKENAN [Concomitant]
     Indication: DRUG USE FOR UNKNOWN INDICATION
     Dosage: DAILY DOSE: 20 MILLIGRAM(S)
     Route: 065
  2. COVERSYL 2 MG [Suspect]
     Indication: HYPERTENSION
     Dosage: DAILY DOSE: 2 MILLIGRAM(S)
     Route: 048
  3. CELLTOP [Suspect]
     Indication: POLYCYTHAEMIA VERA
     Dosage: DAILY DOSE: 50 MILLIGRAM(S)
     Route: 065
  4. CELLTOP [Suspect]
     Dosage: DAILY DOSE: 25 MILLIGRAM(S)
     Route: 065
  5. KARDEGIC [Concomitant]
     Indication: DRUG USE FOR UNKNOWN INDICATION
     Dosage: DAILY DOSE: 75 MILLIGRAM(S)
     Route: 065
  6. XAGRID [Suspect]
     Indication: POLYCYTHAEMIA VERA
     Dosage: DAILY DOSE: 1 MILLIGRAM(S)
     Route: 048
     Dates: end: 20090206
  7. PRAZEPAM [Concomitant]
     Indication: DRUG USE FOR UNKNOWN INDICATION
     Dosage: DAILY DOSE:  UNKNOWN
     Route: 065
  8. RIVOTRIL [Concomitant]
     Indication: DRUG USE FOR UNKNOWN INDICATION
     Dosage: DAILY DOSE:  UNKNOWN
     Route: 065
  9. LAROXYL [Suspect]
     Indication: MAJOR DEPRESSION
     Dosage: DAILY DOSE: 20 DROP(S)
     Route: 048
  10. SPASFON-LYOC [Concomitant]
     Indication: DRUG USE FOR UNKNOWN INDICATION
     Dosage: DAILY DOSE:  UNKNOWN
     Route: 065
  11. DEBRIDAT [Concomitant]
     Indication: DRUG USE FOR UNKNOWN INDICATION
     Dosage: DAILY DOSE: 600 MILLIGRAM(S)
     Route: 065
  12. POLYETHYLENE GLYCOL 3350 AND ELECTOLYTES [Concomitant]
     Indication: DRUG USE FOR UNKNOWN INDICATION
     Dosage: DAILY DOSE:  UNKNOWN
     Route: 065

REACTIONS (3)
  - CARDIAC FAILURE [None]
  - INTERSTITIAL LUNG DISEASE [None]
  - POLYCYTHAEMIA [None]
